FAERS Safety Report 10391074 (Version 2)
Quarter: 2014Q3

REPORT INFORMATION
  Report Type: Spontaneous
  Country: US (occurrence: US)
  Receive Date: 20140818
  Receipt Date: 20140828
  Transmission Date: 20150326
  Serious: Yes (Other)
  Sender: FDA-Public Use
  Company Number: US-GLAXOSMITHKLINE-A1084345A

PATIENT
  Sex: Female

DRUGS (5)
  1. CARDIZEM CD [Concomitant]
     Active Substance: DILTIAZEM HYDROCHLORIDE
  2. VENTOLIN HFA [Concomitant]
     Active Substance: ALBUTEROL SULFATE
  3. XANAX [Concomitant]
     Active Substance: ALPRAZOLAM
  4. ADVAIR HFA [Suspect]
     Active Substance: FLUTICASONE PROPIONATE\SALMETEROL XINAFOATE
     Indication: CHRONIC OBSTRUCTIVE PULMONARY DISEASE
     Dosage: 2PUFF TWICE PER DAY
     Route: 055
     Dates: start: 2004
  5. UNKNOWN DEVICE [Concomitant]
     Active Substance: UNSPECIFIED INGREDIENT

REACTIONS (14)
  - Dyspnoea [Unknown]
  - Inhalation therapy [Unknown]
  - Ill-defined disorder [Unknown]
  - Adverse event [Not Recovered/Not Resolved]
  - Mountain sickness acute [Unknown]
  - Off label use [Unknown]
  - Drug ineffective [Unknown]
  - Nocturnal dyspnoea [Unknown]
  - Suffocation feeling [Unknown]
  - Hypertension [Unknown]
  - Pulmonary embolism [Unknown]
  - Heart rate increased [Unknown]
  - Cerebrovascular accident [Unknown]
  - Throat tightness [Unknown]

NARRATIVE: CASE EVENT DATE: 2014
